FAERS Safety Report 13272406 (Version 2)
Quarter: 2018Q2

REPORT INFORMATION
  Report Type: Spontaneous
  Country: PL (occurrence: PL)
  Receive Date: 20170227
  Receipt Date: 20180503
  Transmission Date: 20180711
  Serious: Yes (Life-Threatening, Hospitalization)
  Sender: FDA-Public Use
  Company Number: PL-TEVA-743773ACC

PATIENT
  Age: 62 Year
  Sex: Female
  Weight: 89 kg

DRUGS (8)
  1. CISPLATIN. [Suspect]
     Active Substance: CISPLATIN
     Indication: OVARIAN CANCER
     Route: 042
     Dates: start: 20170105, end: 20170105
  2. SODIUM CHLORIDE. [Concomitant]
     Active Substance: SODIUM CHLORIDE
  3. DEXAVEN [Concomitant]
     Active Substance: DEXAMETHASONE
     Route: 030
  4. CLEXANE 0,8 [Concomitant]
     Route: 058
  5. NOVORAPID [Concomitant]
     Active Substance: INSULIN ASPART
     Route: 058
  6. ONDANSETRON 8MG [Concomitant]
     Active Substance: ONDANSETRON
     Route: 042
  7. CLEMASTIN [Concomitant]
     Active Substance: CLEMASTINE
     Dosage: 1 AMP
     Route: 042
  8. PWE [Concomitant]

REACTIONS (3)
  - Cardiac arrest [Recovering/Resolving]
  - Pulmonary oedema [Recovering/Resolving]
  - Anaphylactic shock [Recovering/Resolving]

NARRATIVE: CASE EVENT DATE: 20170105
